FAERS Safety Report 18908159 (Version 1)
Quarter: 2021Q1

REPORT INFORMATION
  Report Type: Report from Study
  Country: US (occurrence: US)
  Receive Date: 20210218
  Receipt Date: 20210218
  Transmission Date: 20210420
  Serious: Yes (Other)
  Sender: FDA-Public Use
  Company Number: US-ASTRAZENECA-2021A057467

PATIENT
  Sex: Female

DRUGS (1)
  1. LYNPARZA [Suspect]
     Active Substance: OLAPARIB
     Indication: OVARIAN CANCER
     Dosage: 150MG EVERY MORNING, 300MG EVERY EVENING
     Route: 048
     Dates: start: 20200113, end: 20210211

REACTIONS (1)
  - Malignant neoplasm progression [Unknown]
